FAERS Safety Report 8089074-7 (Version None)
Quarter: 2012Q1

REPORT INFORMATION
  Report Type: 
  Country: None (occurrence: None)
  Receive Date: 20120128
  Receipt Date: 20110629
  Transmission Date: 20120608
  Serious: No
  Sender: FDA-Public Use
  Company Number: US-ABBOTT-11P-163-0715342-00

PATIENT
  Sex: Female
  Weight: 61.744 kg

DRUGS (7)
  1. FISH OIL [Concomitant]
     Indication: PRODUCT USED FOR UNKNOWN INDICATION
  2. CYMBALTA [Concomitant]
     Indication: DEPRESSION
  3. PERCOCET [Concomitant]
     Indication: ARTHRALGIA
  4. HUMIRA [Suspect]
     Indication: PSORIASIS
     Route: 058
     Dates: start: 20090201, end: 20090801
  5. LAMICTAL [Concomitant]
     Indication: DEPRESSION
  6. HUMIRA [Suspect]
     Route: 058
     Dates: start: 20110311
  7. MULTI-VITAMINS [Concomitant]
     Indication: PRODUCT USED FOR UNKNOWN INDICATION

REACTIONS (5)
  - SKIN IRRITATION [None]
  - GESTATIONAL DIABETES [None]
  - PRURITUS [None]
  - ERYTHEMA [None]
  - SKIN MASS [None]
